FAERS Safety Report 7582303-5 (Version None)
Quarter: 2011Q2

REPORT INFORMATION
  Report Type: 
  Country: None (occurrence: None)
  Receive Date: 20110630
  Receipt Date: 20110615
  Transmission Date: 20111010
  Serious: Yes (Hospitalization)
  Sender: FDA-Public Use
  Company Number: US-BAYER-2011-010367

PATIENT
  Age: 35 Year
  Sex: Female
  Weight: 74.83 kg

DRUGS (7)
  1. YASMIN [Suspect]
     Indication: ACNE
     Dosage: 1 DF, QD
     Route: 048
     Dates: start: 20020101, end: 20080101
  2. ASPIRIN [Concomitant]
     Dosage: 325 MG, QD
     Dates: start: 20081227
  3. NORCO [Concomitant]
     Indication: PAIN
  4. FLUCONAZOLE [Concomitant]
     Dosage: 150 MG, UNK
     Route: 048
     Dates: start: 20081007
  5. DOCUSATE SODIUM [Concomitant]
     Dosage: 250 MG, UNK
     Route: 048
     Dates: start: 20081112
  6. YASMIN [Suspect]
     Indication: CONTRACEPTION
  7. IBUPROFEN [Concomitant]
     Dosage: 800 MG, UNK
     Route: 048
     Dates: start: 20081112

REACTIONS (4)
  - VISUAL IMPAIRMENT [None]
  - PAIN [None]
  - RETINAL VEIN OCCLUSION [None]
  - OPTIC ISCHAEMIC NEUROPATHY [None]
